FAERS Safety Report 14851395 (Version 1)
Quarter: 2018Q2

REPORT INFORMATION
  Report Type: Report from Study
  Country: US (occurrence: US)
  Receive Date: 20180507
  Receipt Date: 20180507
  Transmission Date: 20180711
  Serious: No
  Sender: FDA-Public Use
  Company Number: US-IPSEN BIOPHARMACEUTICALS, INC.-2017-15041

PATIENT
  Sex: Female
  Weight: 120 kg

DRUGS (4)
  1. XELODA [Concomitant]
     Active Substance: CAPECITABINE
     Dosage: 14 DAYS PER CYCLE
     Dates: start: 2013
  2. SOMATULINE DEPOT [Suspect]
     Active Substance: LANREOTIDE ACETATE
     Indication: PRIMITIVE NEUROECTODERMAL TUMOUR
     Dosage: 120 MG
     Route: 058
     Dates: start: 20161101, end: 201704
  3. SOMATULINE DEPOT [Suspect]
     Active Substance: LANREOTIDE ACETATE
     Indication: OFF LABEL USE
  4. TEMODAR [Concomitant]
     Active Substance: TEMOZOLOMIDE
     Dosage: 220 MG A NIGHT + 240 MG A DAY, ON DAY 10,11,12,13 AND 14 OF THE CYCLE
     Dates: start: 2013

REACTIONS (5)
  - Diarrhoea [Recovered/Resolved]
  - Drug ineffective [Unknown]
  - Abdominal pain [Recovered/Resolved]
  - Glycosylated haemoglobin increased [Recovering/Resolving]
  - Off label use [Unknown]
